FAERS Safety Report 12644273 (Version 1)
Quarter: 2016Q3

REPORT INFORMATION
  Report Type: Report from Study
  Country: US (occurrence: US)
  Receive Date: 20160811
  Receipt Date: 20160811
  Transmission Date: 20161109
  Serious: Yes (Other)
  Sender: FDA-Public Use
  Company Number: US-ABBVIE-16K-163-1698451-00

PATIENT
  Sex: Female

DRUGS (1)
  1. HUMIRA [Suspect]
     Active Substance: ADALIMUMAB
     Indication: CROHN^S DISEASE
     Route: 058
     Dates: end: 201407

REACTIONS (4)
  - Bone marrow oedema [Not Recovered/Not Resolved]
  - Metastatic cutaneous Crohn^s disease [Not Recovered/Not Resolved]
  - Bone pain [Not Recovered/Not Resolved]
  - Spinal pain [Not Recovered/Not Resolved]
